FAERS Safety Report 6589323-8 (Version None)
Quarter: 2010Q1

REPORT INFORMATION
  Report Type: 
  Country: None (occurrence: None)
  Receive Date: 20100205
  Receipt Date: 20100126
  Transmission Date: 20100710
  Serious: Yes (Death, Hospitalization, Other)
  Sender: FDA-Public Use
  Company Number: A-US2010-33556

PATIENT
  Age: 78 Year
  Sex: Male

DRUGS (12)
  1. VENTAVIS [Suspect]
     Indication: PULMONARY ARTERIAL HYPERTENSION
     Dosage: 5 UG, 6 X DAY, RESPIRATORY
     Route: 055
     Dates: start: 20081105
  2. TRACLEER [Concomitant]
  3. SILDENAFIL CITRATE [Concomitant]
  4. TOREM (TORASEMIDE) [Concomitant]
  5. MARCUMAR [Concomitant]
  6. OXYGEN (OXYGEN) [Concomitant]
  7. SIMVASTATIN [Concomitant]
  8. LEVOTHYROXINE SODIUM [Concomitant]
  9. BICALUTAMIDE [Concomitant]
  10. DULCOLAX [Concomitant]
  11. INSULIN (INSULIN) [Concomitant]
  12. ACTRAPHANE (INSULIN HUMAN INJECTION, ISOPHANE, INSULIN HUMAN) [Concomitant]

REACTIONS (14)
  - ANAEMIA [None]
  - BRADYCARDIA [None]
  - CARDIAC ARREST [None]
  - CARDIAC FAILURE [None]
  - CARDIOVASCULAR INSUFFICIENCY [None]
  - CONDITION AGGRAVATED [None]
  - DYSPNOEA [None]
  - EPISTAXIS [None]
  - INTERNATIONAL NORMALISED RATIO INCREASED [None]
  - LUNG INFECTION [None]
  - PULMONARY ARTERIAL HYPERTENSION [None]
  - RESPIRATORY FAILURE [None]
  - SHOCK HAEMORRHAGIC [None]
  - UPPER GASTROINTESTINAL HAEMORRHAGE [None]
